FAERS Safety Report 26096411 (Version 1)
Quarter: 2025Q4

REPORT INFORMATION
  Report Type: Report from Study
  Country: US (occurrence: US)
  Receive Date: 20251127
  Receipt Date: 20251127
  Transmission Date: 20260118
  Serious: Yes (Hospitalization)
  Sender: ALEXION PHARMACEUTICALS
  Company Number: US-AstraZeneca-CH-00999390A

PATIENT
  Sex: Male

DRUGS (1)
  1. ACALABRUTINIB [Suspect]
     Active Substance: ACALABRUTINIB
     Indication: Hodgkin^s disease
     Dosage: 100 MILLIGRAM, BID
     Dates: start: 202510

REACTIONS (2)
  - Aneurysm [Unknown]
  - Oropharyngeal pain [Unknown]
